FAERS Safety Report 8268379-0 (Version None)
Quarter: 2012Q1

REPORT INFORMATION
  Report Type: 
  Country: None (occurrence: None)
  Receive Date: 20120327
  Receipt Date: 20090915
  Transmission Date: 20120608
  Serious: Yes (Other)
  Sender: FDA-Public Use
  Company Number: PHEH2009US11079

PATIENT
  Age: 36 Year
  Sex: Female
  Weight: 53.978 kg

DRUGS (1)
  1. GLEEVEC [Suspect]
     Indication: CHRONIC MYELOID LEUKAEMIA
     Dosage: 400 MG, DAILY, ORAL
     Route: 048
     Dates: start: 20090601, end: 20090703

REACTIONS (5)
  - SERUM FERRITIN INCREASED [None]
  - PRURITUS [None]
  - GINGIVAL BLISTER [None]
  - HAEMOGLOBIN DECREASED [None]
  - ANAEMIA [None]
